FAERS Safety Report 4595356-3 (Version None)
Quarter: 2005Q1

REPORT INFORMATION
  Report Type: 
  Country: None (occurrence: None)
  Receive Date: 20050225
  Receipt Date: 20050225
  Transmission Date: 20050727
  Serious: No
  Sender: FDA-Public Use
  Company Number: None

PATIENT
  Sex: Female
  Weight: 68.0396 kg

DRUGS (1)
  1. ACTONEL [Suspect]
     Indication: OSTEOPOROSIS
     Dosage: 1 TABLET   DAILY   ORAL
     Route: 048
     Dates: start: 20040701, end: 20050207

REACTIONS (2)
  - THERAPY NON-RESPONDER [None]
  - THYROID NEOPLASM [None]
